FAERS Safety Report 11593658 (Version 1)
Quarter: 2015Q4

REPORT INFORMATION
  Report Type: Spontaneous
  Country: JP (occurrence: JP)
  Receive Date: 20151005
  Receipt Date: 20151005
  Transmission Date: 20160304
  Serious: Yes (Hospitalization, Other)
  Sender: FDA-Public Use
  Company Number: JP-GLAXOSMITHKLINE-JP2015JPN137697

PATIENT
  Age: 77 Year
  Sex: Male

DRUGS (1)
  1. VALTREX [Suspect]
     Active Substance: VALACYCLOVIR HYDROCHLORIDE
     Dosage: 3000 MG, 1D
     Route: 048

REACTIONS (8)
  - Altered state of consciousness [Recovered/Resolved]
  - Toxic encephalopathy [Recovered/Resolved]
  - Depressed level of consciousness [Recovered/Resolved]
  - Renal impairment [Recovered/Resolved]
  - Decreased appetite [Unknown]
  - Acute kidney injury [Recovered/Resolved]
  - Nervous system disorder [Recovered/Resolved]
  - Gait disturbance [Unknown]
